FAERS Safety Report 4753804-X (Version None)
Quarter: 2005Q3

REPORT INFORMATION
  Report Type: 
  Country: None (occurrence: None)
  Receive Date: 20050823
  Receipt Date: 20050627
  Transmission Date: 20060218
  Serious: No
  Sender: FDA-Public Use
  Company Number: 215657

PATIENT
  Age: 45 Year
  Sex: Female

DRUGS (2)
  1. RAPTIVA [Suspect]
     Indication: PSORIASIS
     Dosage: 0.6 ML 1/WEEK SUBCUTANEOUS
     Route: 058
  2. DOVONEX [Concomitant]

REACTIONS (1)
  - ERYTHEMA [None]
